FAERS Safety Report 10897534 (Version 1)
Quarter: 2015Q1

REPORT INFORMATION
  Report Type: Spontaneous
  Country: US (occurrence: US)
  Receive Date: 20150309
  Receipt Date: 20150309
  Transmission Date: 20150721
  Serious: Yes (Other)
  Sender: FDA-Public Use
  Company Number: US-BAYER-2015-031651

PATIENT
  Age: 26 Year
  Sex: Female

DRUGS (2)
  1. MIRENA [Suspect]
     Active Substance: LEVONORGESTREL
     Dosage: 20 MCG/24HR, CONT
     Route: 015
     Dates: start: 201412
  2. MIRENA [Suspect]
     Active Substance: LEVONORGESTREL
     Dosage: 20 MCG/24HR, CONT
     Route: 015

REACTIONS (10)
  - Post procedural haemorrhage [None]
  - Nausea [None]
  - Emotional disorder [None]
  - Hyperphagia [None]
  - Amenorrhoea [None]
  - Abdominal pain lower [None]
  - Abdominal distension [None]
  - Mood swings [None]
  - Thirst [None]
  - Asthenia [None]
